FAERS Safety Report 9342112 (Version 1)
Quarter: 2013Q2

REPORT INFORMATION
  Report Type: Spontaneous
  Country: ES (occurrence: ES)
  Receive Date: 20130611
  Receipt Date: 20130611
  Transmission Date: 20140414
  Serious: Yes (Hospitalization)
  Sender: FDA-Public Use
  Company Number: ES-PFIZER INC-2013172242

PATIENT
  Age: 80 Year
  Sex: Female

DRUGS (3)
  1. LYRICA [Suspect]
     Indication: MUSCULOSKELETAL PAIN
     Dosage: 75 MG, 1X/DAY
     Route: 048
     Dates: start: 20130502, end: 201305
  2. ACETAMINOPHEN [Concomitant]
  3. ALDARA [Concomitant]
     Route: 061

REACTIONS (1)
  - Thrombocytopenic purpura [Recovering/Resolving]
